FAERS Safety Report 9431783 (Version 1)
Quarter: 2013Q3

REPORT INFORMATION
  Report Type: Spontaneous
  Country: US (occurrence: None)
  Receive Date: 20130726
  Receipt Date: 20130726
  Transmission Date: 20140515
  Serious: Yes (Hospitalization)
  Sender: FDA-Public Use
  Company Number: 2013-1179

PATIENT
  Age: 86 Year
  Sex: Male
  Weight: 98.9 kg

DRUGS (13)
  1. KYPROLIS [Suspect]
     Indication: PLASMA CELL MYELOMA
     Dosage: DAYS 1, 2, 8, 9, 15 AND 16
     Dates: start: 201211
  2. REVLIOMID (LENALIDOMIDE) (LENALIDOMIDE) [Concomitant]
  3. DEXAMETHASONE [Concomitant]
  4. ACYCLOVIR (ACICLOVIR) (ACICLOVIR) [Concomitant]
  5. FUROSEMDIE (FUROSEMIDE) (FUROSEMIDE) [Concomitant]
  6. FOLIC ACID (FOLIC ACID) (FOLIC ACID) [Concomitant]
  7. MULTIVITAMIN (VITAMINS NOS) (VITAMINS NOS) [Concomitant]
  8. RANIDTIDINE (RANITIDINE) (RANITIDINE) [Concomitant]
  9. WELLBUTRIN XL (BUPROPION HYDROCHLORIDE) (BUPROPION HYDROCHLORIDE) [Concomitant]
  10. ZOCOR (SIMVASTATIN) (SIMVASTATIN) [Concomitant]
  11. COLACE [Concomitant]
  12. PROCRIT (ERYTHROPOIETIN) (ERYTHOPOIETIN) [Concomitant]
  13. NEUPOGEN (FILGRASTIM) (FILGRASTIM) [Concomitant]

REACTIONS (13)
  - Pneumonia [None]
  - Renal failure acute [None]
  - Hyperkalaemia [None]
  - Chest discomfort [None]
  - Musculoskeletal chest pain [None]
  - Left ventricular dysfunction [None]
  - Haemodialysis [None]
  - Cardiac failure congestive [None]
  - Atelectasis [None]
  - Renal tubular necrosis [None]
  - Hypotension [None]
  - Neutropenia [None]
  - Plasma cell myeloma [None]
